FAERS Safety Report 6525689-2 (Version None)
Quarter: 2009Q4

REPORT INFORMATION
  Report Type: 
  Country: None (occurrence: None)
  Receive Date: 20091214
  Receipt Date: 20081223
  Transmission Date: 20100525
  Serious: Yes (Other)
  Sender: FDA-Public Use
  Company Number: 604655

PATIENT
  Age: 54 Year
  Sex: Female

DRUGS (12)
  1. PEGASYS [Suspect]
     Indication: HEPATITIS C
     Dosage: 180 UG 1 PER WEEK SUBCUTANEOUS
     Route: 058
     Dates: start: 20080114, end: 20081218
  2. COPEGUS [Suspect]
     Indication: HEPATITIS C
     Dosage: 600 MG 2 PER DAY ORAL
     Route: 048
     Dates: start: 20080114, end: 20081218
  3. LUNESTA [Concomitant]
  4. AMBIEN [Concomitant]
  5. PROTONIX [Concomitant]
  6. ALPRAZOLAM [Concomitant]
  7. L-THYROXINE (LEVOTHYROXINE) [Concomitant]
  8. ENBREL [Concomitant]
  9. LAMICTAL [Concomitant]
  10. ZOPICLONE (ZOPICLONE) [Concomitant]
  11. OMNICEF [Concomitant]
  12. CLOBEX [Concomitant]

REACTIONS (3)
  - NEUTROPHIL COUNT DECREASED [None]
  - PLATELET COUNT DECREASED [None]
  - WHITE BLOOD CELL COUNT DECREASED [None]
